FAERS Safety Report 13689634 (Version 1)
Quarter: 2017Q2

REPORT INFORMATION
  Report Type: Spontaneous
  Country: US (occurrence: US)
  Receive Date: 20170623
  Receipt Date: 20170623
  Transmission Date: 20170830
  Serious: No
  Sender: FDA-Public Use
  Company Number: None

PATIENT
  Age: 63 Year
  Sex: Male

DRUGS (1)
  1. IMATINIB MES [Suspect]
     Active Substance: IMATINIB MESYLATE
     Indication: MALIGNANT CONNECTIVE TISSUE NEOPLASM
     Route: 048
     Dates: start: 20170310, end: 20170623

REACTIONS (7)
  - Mood swings [None]
  - Product substitution issue [None]
  - Influenza like illness [None]
  - Nausea [None]
  - Fatigue [None]
  - Asthenia [None]
  - Enuresis [None]

NARRATIVE: CASE EVENT DATE: 20170310
